FAERS Safety Report 7642402-6 (Version None)
Quarter: 2011Q3

REPORT INFORMATION
  Report Type: 
  Country: None (occurrence: None)
  Receive Date: 20110728
  Receipt Date: 20100722
  Transmission Date: 20111222
  Serious: No
  Sender: FDA-Public Use
  Company Number: US-MYLANLABS-2010S1013065

PATIENT
  Age: 60 Year
  Sex: Female
  Weight: 49.9 kg

DRUGS (3)
  1. LEVOTHYROXINE SODIUM [Suspect]
     Indication: HYPOTHYROIDISM
     Route: 048
     Dates: start: 20100301
  2. TYLENOL-500 [Concomitant]
  3. SYNTHROID [Suspect]
     Indication: HYPOTHYROIDISM
     Route: 048

REACTIONS (3)
  - REACTION TO DRUG EXCIPIENTS [None]
  - LOCALISED OEDEMA [None]
  - LYMPH NODE PAIN [None]
